FAERS Safety Report 8330999-2 (Version None)
Quarter: 2012Q2

REPORT INFORMATION
  Report Type: 
  Country: None (occurrence: None)
  Receive Date: 20120502
  Receipt Date: 20120405
  Transmission Date: 20120825
  Serious: No
  Sender: FDA-Public Use
  Company Number: US-AMGEN-USASP2011053058

PATIENT
  Age: 62 Year
  Sex: Female
  Weight: 67.12 kg

DRUGS (18)
  1. ACTOS [Concomitant]
     Dosage: UNK UNK, QD
  2. SYNTHROID [Concomitant]
  3. FLEXERIL [Concomitant]
     Dosage: UNK UNK, QHS
  4. BYETTA [Concomitant]
     Dosage: 5 MG, BID
  5. DOXYCYCLINE [Concomitant]
  6. METHOTREXATE [Concomitant]
     Dosage: 7.5 MG, QWK
  7. FOLIC ACID [Concomitant]
     Dosage: 1 MG, QD
  8. ENBREL [Suspect]
     Indication: RHEUMATOID ARTHRITIS
     Dosage: 50 MG, QWK
     Route: 058
     Dates: start: 20100825, end: 20111010
  9. LYRICA [Concomitant]
     Dosage: UNK UNK, BID
  10. PREDNISONE [Concomitant]
     Dosage: 3 MG, QD
  11. GLIPIZIDE [Concomitant]
     Dosage: 5 MG, QD
  12. ELMIRON [Concomitant]
     Dosage: UNK UNK, BID
  13. XANAX [Concomitant]
     Dosage: 125 MG, QD
  14. CYMBALTA [Concomitant]
     Dosage: 30 MG, QD
  15. BENICAR [Concomitant]
     Dosage: 20 MG, QD
  16. MAVIK [Concomitant]
     Dosage: 1 MG, QD
  17. SULFASALAZINE [Concomitant]
     Dosage: 500 MG, BID
  18. HUMALOG [Concomitant]

REACTIONS (13)
  - IMPAIRED GASTRIC EMPTYING [None]
  - PYREXIA [None]
  - PAROSMIA [None]
  - DIARRHOEA [None]
  - WEIGHT DECREASED [None]
  - URINARY TRACT INFECTION [None]
  - INFECTION [None]
  - PAIN IN EXTREMITY [None]
  - DECREASED APPETITE [None]
  - SINUSITIS [None]
  - BLOOD GLUCOSE INCREASED [None]
  - MUSCULOSKELETAL STIFFNESS [None]
  - VOMITING [None]
